FAERS Safety Report 4746304-4 (Version None)
Quarter: 2005Q3

REPORT INFORMATION
  Report Type: 
  Country: None (occurrence: None)
  Receive Date: 20050816
  Receipt Date: 20050816
  Transmission Date: 20060218
  Serious: Yes (Other)
  Sender: FDA-Public Use
  Company Number: None

PATIENT
  Age: 81 Year
  Sex: Female

DRUGS (1)
  1. CLONAZEPAM [Suspect]
     Dosage: 1/2 TABLET   TWICE A DAY  ORAL
     Route: 048
     Dates: start: 20050802, end: 20050803

REACTIONS (5)
  - ASTHENIA [None]
  - CLUMSINESS [None]
  - DIZZINESS [None]
  - MUSCULAR WEAKNESS [None]
  - VERTIGO [None]
